FAERS Safety Report 5160770-4 (Version None)
Quarter: 2006Q4

REPORT INFORMATION
  Report Type: 
  Country: None (occurrence: None)
  Receive Date: 20060919
  Receipt Date: 20060706
  Transmission Date: 20070319
  Serious: No
  Sender: FDA-Public Use
  Company Number: BDI-008414

PATIENT
  Age: 35 Year
  Sex: Female

DRUGS (2)
  1. MULTIHANCE [Suspect]
     Indication: ARRHYTHMOGENIC RIGHT VENTRICULAR DYSPLASIA
     Dosage: 42 ML ONCE IV
     Route: 042
     Dates: start: 20060531, end: 20060531
  2. MULTIHANCE [Suspect]
     Indication: NUCLEAR MAGNETIC RESONANCE IMAGING
     Dosage: 42 ML ONCE IV
     Route: 042
     Dates: start: 20060531, end: 20060531

REACTIONS (2)
  - NAUSEA [None]
  - VOMITING [None]
